FAERS Safety Report 6153995-2 (Version None)
Quarter: 2009Q2

REPORT INFORMATION
  Report Type: 
  Country: None (occurrence: None)
  Receive Date: 20090414
  Receipt Date: 20090403
  Transmission Date: 20091009
  Serious: Yes (Hospitalization, Other)
  Sender: FDA-Public Use
  Company Number: PHHY2009JP07058

PATIENT
  Age: 59 Year
  Sex: Male

DRUGS (4)
  1. VOLTAREN [Suspect]
     Dosage: 3 DF
     Route: 048
     Dates: start: 20090124, end: 20090130
  2. LOXONIN [Concomitant]
     Indication: BACK PAIN
     Dosage: 3 DF
     Route: 048
     Dates: start: 20081227, end: 20090123
  3. KETOPROFEN [Concomitant]
     Indication: BACK PAIN
     Dosage: UNK
     Route: 062
     Dates: start: 20081227
  4. MUCOSTA [Concomitant]
     Dosage: UNK
     Dates: start: 20081227

REACTIONS (4)
  - DUODENAL PERFORATION [None]
  - GASTRIC ULCER [None]
  - PERITONITIS [None]
  - SURGERY [None]
